FAERS Safety Report 8556115-X (Version None)
Quarter: 2012Q3

REPORT INFORMATION
  Report Type: 
  Country: None (occurrence: None)
  Receive Date: 20120801
  Receipt Date: 20120730
  Transmission Date: 20120928
  Serious: Yes (Hospitalization, Other)
  Sender: FDA-Public Use
  Company Number: US-SANOFI-AVENTIS-2012SA054441

PATIENT
  Age: 83 Year
  Sex: Male

DRUGS (1)
  1. LANTUS [Suspect]
     Dosage: DOASGE: SLIDING SCALE DOSE
     Route: 058
     Dates: start: 19950101

REACTIONS (7)
  - FALL [None]
  - LACERATION [None]
  - HYPERGLYCAEMIA [None]
  - LIGAMENT SPRAIN [None]
  - THROMBOSIS [None]
  - ASTHENIA [None]
  - HOSPITALISATION [None]
